FAERS Safety Report 17191437 (Version 1)
Quarter: 2019Q4

REPORT INFORMATION
  Report Type: Spontaneous
  Country: US (occurrence: US)
  Receive Date: 20191223
  Receipt Date: 20191223
  Transmission Date: 20200122
  Serious: No
  Sender: FDA-Public Use
  Company Number: US-PFIZER INC-2019543811

PATIENT
  Sex: Female

DRUGS (2)
  1. CYTOMEL [Suspect]
     Active Substance: LIOTHYRONINE SODIUM
     Dosage: 5 UG, UNK
  2. CYTOMEL [Suspect]
     Active Substance: LIOTHYRONINE SODIUM
     Dosage: UNK ( 3/4 OF THE 5MCG DOSE)

REACTIONS (2)
  - Palpitations [Unknown]
  - Anxiety [Unknown]
